FAERS Safety Report 4398206-3 (Version None)
Quarter: 2004Q3

REPORT INFORMATION
  Report Type: 
  Country: None (occurrence: None)
  Receive Date: 20040713
  Receipt Date: 20040630
  Transmission Date: 20050211
  Serious: Yes (Death)
  Sender: FDA-Public Use
  Company Number: JP-JNJFOC-20040400843

PATIENT
  Age: 57 Year
  Sex: Male

DRUGS (8)
  1. FENTANYL [Suspect]
     Indication: CANCER PAIN
     Dosage: 2.5 MG , 1 IN 3 DAY , TRANSDERMAL
     Route: 062
     Dates: start: 20031225, end: 20040130
  2. MORPHINE [Concomitant]
  3. PREDNISOLONE [Concomitant]
  4. DICLOFENAC SODIUM [Concomitant]
  5. MORPHINE SULFATE [Concomitant]
  6. DEXAMETHASONE SODIUM PHOSPHATE [Concomitant]
  7. FLUOROURACIL [Concomitant]
  8. LEVOFOLINTE CALCIUM (CALCIUM LEVOFOLINATE) [Concomitant]

REACTIONS (2)
  - GASTRIC CANCER [None]
  - MALIGNANT NEOPLASM PROGRESSION [None]
